FAERS Safety Report 4619931-2 (Version None)
Quarter: 2005Q1

REPORT INFORMATION
  Report Type: 
  Country: None (occurrence: None)
  Receive Date: 20050328
  Receipt Date: 20050318
  Transmission Date: 20050727
  Serious: Yes (Hospitalization)
  Sender: FDA-Public Use
  Company Number: US-ABBOTT-05P-163-0294745-00

PATIENT
  Sex: Male
  Weight: 86.26 kg

DRUGS (6)
  1. HUMIRA [Suspect]
     Indication: CROHN'S DISEASE
     Route: 058
     Dates: start: 20041126
  2. AZATHIOPRINE [Concomitant]
     Indication: CROHN'S DISEASE
     Route: 048
     Dates: start: 20040101
  3. GLIBENCLAMIDE [Concomitant]
     Indication: DIABETES MELLITUS
     Route: 048
  4. NADOLOL [Concomitant]
     Indication: BLOOD PRESSURE
     Route: 048
  5. FORVIA [Concomitant]
     Indication: CROHN'S DISEASE
     Route: 048
     Dates: start: 20040101
  6. HYALURONATE SODIUM [Concomitant]
     Indication: OSTEOARTHRITIS
     Route: 050
     Dates: start: 19970101

REACTIONS (2)
  - CROHN'S DISEASE [None]
  - THERAPEUTIC RESPONSE UNEXPECTED [None]
